FAERS Safety Report 14901812 (Version 20)
Quarter: 2021Q3

REPORT INFORMATION
  Report Type: Spontaneous
  Country: CA (occurrence: CA)
  Receive Date: 20180516
  Receipt Date: 20210928
  Transmission Date: 20211014
  Serious: Yes (Other)
  Sender: FDA-Public Use
  Company Number: CA-CELLTRION INC.-2018CA018307

PATIENT

DRUGS (31)
  1. INFLECTRA [Suspect]
     Active Substance: INFLIXIMAB-DYYB
     Dosage: 362.5 MG, (Q 0, 2, 6 WEEKS, THEN EVERY 8 WEEKS)
     Route: 042
     Dates: start: 20180310
  2. INFLECTRA [Suspect]
     Active Substance: INFLIXIMAB-DYYB
     Dosage: 400 MG, EVERY 0, 2, 6 WEEKS, THEN EVERY 4 WEEKS
     Route: 042
     Dates: start: 20180915
  3. INFLECTRA [Suspect]
     Active Substance: INFLIXIMAB-DYYB
     Dosage: 500 MG EVERY 4 WEEKS
     Route: 042
     Dates: start: 20200502
  4. INFLECTRA [Suspect]
     Active Substance: INFLIXIMAB-DYYB
     Dosage: 500 MG  EVERY 4 WEEKS
     Route: 042
     Dates: start: 20200530
  5. INFLECTRA [Suspect]
     Active Substance: INFLIXIMAB-DYYB
     Dosage: 500 MG  EVERY 4 WEEKS
     Route: 042
     Dates: start: 20201114
  6. INFLECTRA [Suspect]
     Active Substance: INFLIXIMAB-DYYB
     Dosage: 500 MG,  EVERY 4 WEEKS
     Route: 042
     Dates: start: 20210916
  7. INFLECTRA [Suspect]
     Active Substance: INFLIXIMAB-DYYB
     Dosage: 400 MG, EVERY 0, 2, 6 WEEKS, THEN EVERY 4 WEEKS
     Route: 042
     Dates: start: 20200307
  8. INFLECTRA [Suspect]
     Active Substance: INFLIXIMAB-DYYB
     Dosage: 500 MG  EVERY 4 WEEKS
     Route: 042
     Dates: start: 20201017
  9. SPIRONOLACTONE. [Concomitant]
     Active Substance: SPIRONOLACTONE
     Dosage: 2 DF (TABLETS), DAILY
     Route: 048
     Dates: start: 2016
  10. INFLECTRA [Suspect]
     Active Substance: INFLIXIMAB-DYYB
     Dosage: 400 MG, EVERY 0, 2, 6 WEEKS, THEN EVERY 4 WEEKS
     Route: 042
     Dates: start: 20181013
  11. INFLECTRA [Suspect]
     Active Substance: INFLIXIMAB-DYYB
     Dosage: UNK
     Route: 042
     Dates: start: 20181110
  12. INFLECTRA [Suspect]
     Active Substance: INFLIXIMAB-DYYB
     Dosage: 400 MG, EVERY 0, 2, 6 WEEKS, THEN EVERY 4 WEEKS
     Route: 042
     Dates: start: 20191214
  13. INFLECTRA [Suspect]
     Active Substance: INFLIXIMAB-DYYB
     Dosage: 400 MG, EVERY 0, 2, 6 WEEKS, THEN EVERY 4 WEEKS
     Route: 042
     Dates: start: 20200111
  14. INFLECTRA [Suspect]
     Active Substance: INFLIXIMAB-DYYB
     Dosage: 500 MG,  EVERY 4 WEEKS
     Route: 042
     Dates: start: 20210916
  15. INFLECTRA [Suspect]
     Active Substance: INFLIXIMAB-DYYB
     Dosage: 362.5 MG, (Q 0, 2, 6 WEEKS, THEN EVERY 8 WEEKS)
     Route: 042
     Dates: start: 20180505
  16. INFLECTRA [Suspect]
     Active Substance: INFLIXIMAB-DYYB
     Dosage: 362.5 MG, EVERY 0, 2, 6 WEEKS, THEN EVERY 4 WEEKS
     Route: 042
     Dates: start: 20180623
  17. INFLECTRA [Suspect]
     Active Substance: INFLIXIMAB-DYYB
     Dosage: 362.5 MG  (INSTEAD OF A FIXED DOSE OF 400), (EVERY 0, 2, 6 WEEKS, THEN EVERY 4 WEEKS)
     Route: 042
     Dates: start: 20180721
  18. INFLECTRA [Suspect]
     Active Substance: INFLIXIMAB-DYYB
     Dosage: 400 MG, EVERY 0, 2, 6 WEEKS, THEN EVERY 4 WEEKS
     Route: 042
     Dates: start: 20200307
  19. PENTASA [Concomitant]
     Active Substance: MESALAMINE
     Dosage: 4 DF (TABLETS), 2X/DAY (AM AND HS)
     Route: 048
     Dates: start: 1995
  20. INFLECTRA [Suspect]
     Active Substance: INFLIXIMAB-DYYB
     Dosage: 500 MG  EVERY 4 WEEKS
     Route: 042
     Dates: start: 20200502
  21. INFLECTRA [Suspect]
     Active Substance: INFLIXIMAB-DYYB
     Dosage: 500 MG  EVERY 4 WEEKS
     Route: 042
     Dates: start: 20200919
  22. INFLECTRA [Suspect]
     Active Substance: INFLIXIMAB-DYYB
     Dosage: 500 MG EVERY 4 WEEKS
     Route: 042
     Dates: start: 20201017
  23. INFLECTRA [Suspect]
     Active Substance: INFLIXIMAB-DYYB
     Dosage: 500 MG EVERY 4 WEEKS
     Route: 042
     Dates: start: 20201017
  24. INFLECTRA [Suspect]
     Active Substance: INFLIXIMAB-DYYB
     Indication: COLITIS ULCERATIVE
     Dosage: 362.5 MG, (Q 0, 2, 6 WEEKS, THEN EVERY 8 WEEKS)
     Route: 042
     Dates: start: 20180120
  25. INFLECTRA [Suspect]
     Active Substance: INFLIXIMAB-DYYB
     Dosage: 362.5 MG, (Q 0, 2, 6 WEEKS, THEN EVERY 8 WEEKS)
     Route: 042
     Dates: start: 20180210
  26. INFLECTRA [Suspect]
     Active Substance: INFLIXIMAB-DYYB
     Dosage: 400 MG, EVERY 0, 2, 6 WEEKS, THEN EVERY 4 WEEKS
     Route: 042
     Dates: start: 20200307
  27. INFLECTRA [Suspect]
     Active Substance: INFLIXIMAB-DYYB
     Dosage: 400 MG, EVERY 0, 2, 6 WEEKS, THEN EVERY 4 WEEKS
     Route: 042
     Dates: start: 20200404
  28. INFLECTRA [Suspect]
     Active Substance: INFLIXIMAB-DYYB
     Dosage: 400 MG Q 0, 2, 6 WEEKS, THEN EVERY 4 WEEKS
     Route: 042
     Dates: start: 20180623
  29. INFLECTRA [Suspect]
     Active Substance: INFLIXIMAB-DYYB
     Dosage: 400 MG, EVERY 0, 2, 6 WEEKS, THEN EVERY 4 WEEKS
     Route: 042
     Dates: start: 20191116
  30. INFLECTRA [Suspect]
     Active Substance: INFLIXIMAB-DYYB
     Dosage: 400 MG, EVERY 0, 2, 6 WEEKS, THEN EVERY 4 WEEKS
     Route: 042
     Dates: start: 20200208
  31. VITAMIN D [Concomitant]
     Active Substance: VITAMIN D NOS
     Dosage: 1 DF (TABLET), DAILY
     Route: 048

REACTIONS (18)
  - Cough [Not Recovered/Not Resolved]
  - Pyrexia [Recovered/Resolved]
  - Condition aggravated [Not Recovered/Not Resolved]
  - Infection [Recovered/Resolved]
  - Malaise [Not Recovered/Not Resolved]
  - Off label use [Unknown]
  - Fatigue [Unknown]
  - Off label use [Unknown]
  - Incorrect dose administered [Unknown]
  - Influenza like illness [Recovered/Resolved]
  - Blood pressure increased [Unknown]
  - Pain [Unknown]
  - Pharyngitis [Unknown]
  - Drug ineffective [Recovering/Resolving]
  - Haemorrhage [Unknown]
  - Intentional product use issue [Unknown]
  - Faecal calprotectin increased [Unknown]
  - Oropharyngeal pain [Not Recovered/Not Resolved]

NARRATIVE: CASE EVENT DATE: 20180130
